FAERS Safety Report 23300880 (Version 1)
Quarter: 2023Q4

REPORT INFORMATION
  Report Type: Spontaneous
  Country: US (occurrence: US)
  Receive Date: 20231215
  Receipt Date: 20231215
  Transmission Date: 20240110
  Serious: Yes (Death)
  Sender: FDA-Public Use
  Company Number: US-VERICEL-US-VCEL-23-000378

PATIENT
  Sex: Male

DRUGS (1)
  1. BROMELAINS [Suspect]
     Active Substance: BROMELAINS
     Indication: Thermal burn
     Dosage: UNK
     Route: 065
     Dates: start: 20231010

REACTIONS (3)
  - Injury [Fatal]
  - Intestinal perforation [Fatal]
  - Portal vein thrombosis [Fatal]
